FAERS Safety Report 16991655 (Version 1)
Quarter: 2019Q4

REPORT INFORMATION
  Report Type: Report from Study
  Country: US (occurrence: US)
  Receive Date: 20191104
  Receipt Date: 20191104
  Transmission Date: 20200122
  Serious: Yes (Hospitalization)
  Sender: FDA-Public Use
  Company Number: US-GILEAD-2019-0435294

PATIENT
  Age: 33 Year
  Sex: Female

DRUGS (1)
  1. AZTREONAM LYSINE [Suspect]
     Active Substance: AZTREONAM LYSINE
     Indication: CYSTIC FIBROSIS
     Dosage: TID, ALTERNATE EVERY OTHER MONTH
     Route: 055
     Dates: start: 20161208

REACTIONS (2)
  - Condition aggravated [Unknown]
  - Pulmonary function test increased [Unknown]

NARRATIVE: CASE EVENT DATE: 20191011
